FAERS Safety Report 25570589 (Version 2)
Quarter: 2025Q3

REPORT INFORMATION
  Report Type: Spontaneous
  Country: GB (occurrence: GB)
  Receive Date: 20250717
  Receipt Date: 20250729
  Transmission Date: 20251020
  Serious: Yes (Other)
  Sender: Rayner
  Company Number: GB-RAYNER Pharma-RPH202506-000007

PATIENT
  Age: 80 Year
  Sex: Male

DRUGS (1)
  1. OMIDRIA [Suspect]
     Active Substance: KETOROLAC\PHENYLEPHRINE
     Indication: Cataract operation
     Dates: start: 20250506

REACTIONS (1)
  - Uveitis [Unknown]

NARRATIVE: CASE EVENT DATE: 20250611
